FAERS Safety Report 5513203-X (Version None)
Quarter: 2007Q4

REPORT INFORMATION
  Report Type: 
  Country: None (occurrence: None)
  Receive Date: 20071112
  Receipt Date: 20071030
  Transmission Date: 20080405
  Serious: Yes (Hospitalization)
  Sender: FDA-Public Use
  Company Number: US-SHR-US-2007-041183

PATIENT
  Age: 28 Year
  Sex: Male

DRUGS (2)
  1. BETASERON [Suspect]
     Route: 058
     Dates: start: 20070427, end: 20070527
  2. BETASERON [Suspect]
     Dosage: 8 MIU, EVERY 2D
     Route: 058
     Dates: start: 20070529, end: 20071030

REACTIONS (3)
  - AMYOTROPHIC LATERAL SCLEROSIS [None]
  - MOBILITY DECREASED [None]
  - PARALYSIS [None]
